FAERS Safety Report 24549560 (Version 2)
Quarter: 2024Q4

REPORT INFORMATION
  Report Type: Spontaneous
  Country: US (occurrence: US)
  Receive Date: 20241025
  Receipt Date: 20241025
  Transmission Date: 20250115
  Serious: Yes (Hospitalization)
  Sender: VIFOR (INTERNATIONAL) INC.
  Company Number: US-Vifor (International) Inc.-VIT-2024-09726

PATIENT
  Age: 80 Year
  Sex: Female

DRUGS (3)
  1. VELTASSA [Suspect]
     Active Substance: PATIROMER
     Indication: Product used for unknown indication
     Dates: start: 202404
  2. VELTASSA [Suspect]
     Active Substance: PATIROMER
     Dates: start: 202407
  3. VELTASSA [Suspect]
     Active Substance: PATIROMER
     Dosage: 16.8 QOD
     Dates: start: 20240917

REACTIONS (4)
  - Blood calcium increased [Recovered/Resolved]
  - Fall [Unknown]
  - Lower limb fracture [Unknown]
  - Off label use [Unknown]

NARRATIVE: CASE EVENT DATE: 20240101
